FAERS Safety Report 5519878-3 (Version None)
Quarter: 2007Q4

REPORT INFORMATION
  Report Type: 
  Country: None (occurrence: None)
  Receive Date: 20071116
  Receipt Date: 20071003
  Transmission Date: 20080405
  Serious: No
  Sender: FDA-Public Use
  Company Number: A0685939A

PATIENT
  Age: 46 Year
  Sex: Female

DRUGS (13)
  1. COREG CR [Suspect]
     Dosage: 10MG PER DAY
     Route: 048
     Dates: start: 20070919
  2. METENOLONE [Concomitant]
  3. CLONAZEPAM [Concomitant]
  4. FOLIC ACID [Concomitant]
  5. MUCINEX [Concomitant]
  6. DYAZIDE [Concomitant]
  7. DIAZEPAM [Concomitant]
  8. LIPITOR [Concomitant]
  9. ASPIRIN [Concomitant]
  10. BENZONATATE [Concomitant]
  11. LORTAB [Concomitant]
  12. LANTUS [Concomitant]
  13. NOVOLOG [Concomitant]

REACTIONS (5)
  - BLOOD PRESSURE INCREASED [None]
  - CHEST PAIN [None]
  - NECK PAIN [None]
  - PHARYNGOLARYNGEAL PAIN [None]
  - THERAPEUTIC RESPONSE UNEXPECTED [None]
